FAERS Safety Report 20207660 (Version 3)
Quarter: 2022Q1

REPORT INFORMATION
  Report Type: Report from Study
  Country: CA (occurrence: CA)
  Receive Date: 20211220
  Receipt Date: 20220210
  Transmission Date: 20220423
  Serious: Yes (Death, Other)
  Sender: FDA-Public Use
  Company Number: CA-MYLANLABS-2021M1094214

PATIENT
  Age: 74 Year
  Sex: Male
  Weight: 145 kg

DRUGS (1)
  1. CLOZAPINE [Suspect]
     Active Substance: CLOZAPINE
     Indication: Product used for unknown indication
     Dosage: UNK
     Dates: start: 20160816

REACTIONS (6)
  - Death [Fatal]
  - Epilepsy [Unknown]
  - Myocardial infarction [Unknown]
  - Hypertension [Unknown]
  - Atrial fibrillation [Unknown]
  - Organ failure [Unknown]

NARRATIVE: CASE EVENT DATE: 20211214
